FAERS Safety Report 21596597 (Version 3)
Quarter: 2023Q1

REPORT INFORMATION
  Report Type: Spontaneous
  Country: US (occurrence: US)
  Receive Date: 20221115
  Receipt Date: 20230110
  Transmission Date: 20230418
  Serious: Yes (Hospitalization, Other)
  Sender: FDA-Public Use
  Company Number: US-PFIZER INC-202201296718

PATIENT
  Age: 80 Year
  Sex: Female
  Weight: 72.57 kg

DRUGS (3)
  1. PAXLOVID [Suspect]
     Active Substance: NIRMATRELVIR\RITONAVIR
     Indication: COVID-19 treatment
     Dosage: [PF-07321332 300 MG]/[RITONAVIR 100 MG]; 2X/DAY
     Dates: start: 202211, end: 202211
  2. PAXLOVID [Suspect]
     Active Substance: NIRMATRELVIR\RITONAVIR
     Dosage: [PF-07321332 150 MG]/[RITONAVIR 100 MG]; 2X/DAY
     Dates: start: 202211, end: 202211
  3. VITAMIN C [Concomitant]
     Active Substance: ASCORBIC ACID
     Dosage: 1 DF, DAILY (ONE A DAY)

REACTIONS (12)
  - Skin exfoliation [Unknown]
  - Dry skin [Recovering/Resolving]
  - Tongue coated [Unknown]
  - Chest pain [Unknown]
  - Chest discomfort [Unknown]
  - Chromaturia [Recovered/Resolved]
  - Renal disorder [Unknown]
  - Breast pain [Recovering/Resolving]
  - Illness [Unknown]
  - Muscle spasms [Unknown]
  - Skin disorder [Unknown]
  - Fatigue [Unknown]

NARRATIVE: CASE EVENT DATE: 20221101
